FAERS Safety Report 16322093 (Version 2)
Quarter: 2019Q2

REPORT INFORMATION
  Report Type: Spontaneous
  Country: US (occurrence: US)
  Receive Date: 20190516
  Receipt Date: 20190613
  Transmission Date: 20190711
  Serious: No
  Sender: FDA-Public Use
  Company Number: US-ACTELION-A-NJ2019-189505

PATIENT
  Age: 61 Year
  Sex: Female
  Weight: 106.58 kg

DRUGS (1)
  1. OPSUMIT [Suspect]
     Active Substance: MACITENTAN
     Indication: PULMONARY ARTERIAL HYPERTENSION
     Dosage: 10 MG, QD
     Route: 048

REACTIONS (10)
  - Pain [Unknown]
  - Rash pruritic [Unknown]
  - Erythema [Unknown]
  - Arthropod bite [Unknown]
  - Feeling hot [Unknown]
  - Dyspnoea [Recovering/Resolving]
  - Rash [Unknown]
  - Weight increased [Unknown]
  - Pruritus [Recovering/Resolving]
  - Peripheral swelling [Unknown]

NARRATIVE: CASE EVENT DATE: 201904
